FAERS Safety Report 5943868-X (Version None)
Quarter: 2008Q4

REPORT INFORMATION
  Report Type: 
  Country: None (occurrence: None)
  Receive Date: 20081104
  Receipt Date: 20081023
  Transmission Date: 20090506
  Serious: Yes (Life-Threatening, Hospitalization)
  Sender: FDA-Public Use
  Company Number: 220004K08USA

PATIENT
  Age: 18 Year
  Sex: Male
  Weight: 62 kg

DRUGS (4)
  1. SAIZEN [Suspect]
     Indication: GROWTH HORMONE DEFICIENCY
     Dosage: 2.6 1 IN 1 DAYS, SUBCUTANEOUS
     Route: 058
     Dates: start: 20080702, end: 20080830
  2. DDAVP [Concomitant]
  3. CORTEF (HYDROCORTISONE /00028601/) [Concomitant]
  4. SYNTHROID [Concomitant]

REACTIONS (1)
  - METASTASES TO SPINE [None]
